FAERS Safety Report 10252540 (Version 2)
Quarter: 2014Q3

REPORT INFORMATION
  Report Type: Spontaneous
  Country: CN (occurrence: CN)
  Receive Date: 20140623
  Receipt Date: 20140822
  Transmission Date: 20150326
  Serious: Yes (Hospitalization)
  Sender: FDA-Public Use
  Company Number: PHHY2014CN075954

PATIENT
  Age: 29 Year
  Sex: Male

DRUGS (1)
  1. CARBAMAZEPINE. [Suspect]
     Active Substance: CARBAMAZEPINE
     Indication: EPILEPSY

REACTIONS (10)
  - Pyrexia [Unknown]
  - Eyelid oedema [Unknown]
  - Epidermolysis bullosa [Unknown]
  - Blister [Unknown]
  - Conjunctival hyperaemia [Unknown]
  - Skin exfoliation [Unknown]
  - Secretion discharge [Unknown]
  - Generalised erythema [Unknown]
  - Epidermal necrosis [Unknown]
  - Oral mucosa erosion [Unknown]
